FAERS Safety Report 20957826 (Version 1)
Quarter: 2022Q2

REPORT INFORMATION
  Report Type: Spontaneous
  Country: DK (occurrence: DK)
  Receive Date: 20220614
  Receipt Date: 20220614
  Transmission Date: 20220721
  Serious: Yes (Disabling)
  Sender: FDA-Public Use
  Company Number: None

PATIENT
  Age: 3 Decade
  Sex: Male

DRUGS (2)
  1. CLOZAPINE [Suspect]
     Active Substance: CLOZAPINE
     Indication: Schizophrenia
     Dosage: 400 MILLIGRAM, QD (STRENGTH: 100 MG)
     Route: 048
     Dates: start: 2011
  2. CLOZAPINE [Suspect]
     Active Substance: CLOZAPINE
     Indication: Schizophrenia
     Dosage: 100 MILLIGRAM, QD (STRENGTH: 25 MG)
     Route: 048
     Dates: start: 2011

REACTIONS (2)
  - Left ventricular dilatation [Not Recovered/Not Resolved]
  - Cardiac failure chronic [Unknown]

NARRATIVE: CASE EVENT DATE: 20210101
